FAERS Safety Report 16031242 (Version 2)
Quarter: 2019Q2

REPORT INFORMATION
  Report Type: Spontaneous
  Country: HK (occurrence: HK)
  Receive Date: 20190304
  Receipt Date: 20190412
  Transmission Date: 20190711
  Serious: Yes (Other)
  Sender: FDA-Public Use
  Company Number: HK-GILEAD-2019-0391909

PATIENT
  Age: 69 Year
  Sex: Male

DRUGS (2)
  1. TELBIVUDINE [Concomitant]
     Active Substance: TELBIVUDINE
     Dosage: UNK
     Dates: end: 201705
  2. VIREAD [Suspect]
     Active Substance: TENOFOVIR DISOPROXIL FUMARATE
     Indication: PRODUCT USED FOR UNKNOWN INDICATION
     Dosage: UNK
     Route: 065
     Dates: start: 201705

REACTIONS (3)
  - Renal impairment [Unknown]
  - IgA nephropathy [Unknown]
  - Blood phosphorus decreased [Unknown]
